FAERS Safety Report 8133699-7 (Version None)
Quarter: 2012Q1

REPORT INFORMATION
  Report Type: 
  Country: None (occurrence: None)
  Receive Date: 20120213
  Receipt Date: 20120207
  Transmission Date: 20120608
  Serious: Yes (Other)
  Sender: FDA-Public Use
  Company Number: FR-PFIZER INC-2012033265

PATIENT
  Age: 48 Year
  Sex: Female

DRUGS (4)
  1. DAUNORUBICIN [Concomitant]
     Dosage: 35 MG/M2, AT DAY 8-9
  2. DAUNORUBICIN [Concomitant]
     Indication: ACUTE MYELOID LEUKAEMIA
     Dosage: 60 MG/M2, AT DAY 1-3
     Route: 042
  3. CYTARABINE [Suspect]
     Indication: ACUTE MYELOID LEUKAEMIA
     Dosage: 500 MG/M2, AT DAY 1-3
     Route: 042
  4. CYTARABINE [Suspect]
     Dosage: 2000 MG/M2, AT DAY 8-10

REACTIONS (1)
  - INFECTIOUS PERITONITIS [None]
